FAERS Safety Report 4359047-6 (Version None)
Quarter: 2004Q2

REPORT INFORMATION
  Report Type: 
  Country: None (occurrence: None)
  Receive Date: 20040517
  Receipt Date: 20040316
  Transmission Date: 20050107
  Serious: Yes (Other)
  Sender: FDA-Public Use
  Company Number: CA-AMGEN-US067149

PATIENT
  Sex: Male
  Weight: 68 kg

DRUGS (11)
  1. ARANESP [Suspect]
     Indication: DIALYSIS
     Route: 042
     Dates: start: 20030211, end: 20031005
  2. EPREX [Suspect]
     Route: 058
     Dates: start: 20011201, end: 20030201
  3. TUMS [Concomitant]
  4. ADALAT [Concomitant]
  5. ATIVAN [Concomitant]
  6. RENAGEL [Concomitant]
  7. PRAZOSIN HCL [Concomitant]
  8. TRANDATE [Concomitant]
  9. COZAAR [Concomitant]
  10. CLONIDINE HCL [Concomitant]
  11. LASIX [Concomitant]

REACTIONS (10)
  - ANTIBODY TEST POSITIVE [None]
  - CATHETER RELATED INFECTION [None]
  - HYPERTENSION [None]
  - HYPOPLASTIC ANAEMIA [None]
  - INJECTION SITE PAIN [None]
  - PERITONEAL DIALYSIS [None]
  - PERITONITIS [None]
  - PULMONARY OEDEMA [None]
  - STAPHYLOCOCCAL INFECTION [None]
  - TREATMENT NONCOMPLIANCE [None]
